FAERS Safety Report 9316337 (Version 4)
Quarter: 2013Q2

REPORT INFORMATION
  Report Type: Spontaneous
  Country: IT (occurrence: None)
  Receive Date: 20130521
  Receipt Date: 20130628
  Transmission Date: 20140414
  Serious: Yes (Hospitalization)
  Sender: FDA-Public Use
  Company Number: 2013MPI00270

PATIENT
  Age: 44 Year
  Sex: Male
  Weight: 100 kg

DRUGS (8)
  1. ADCETRIS [Suspect]
     Indication: HODGKIN^S DISEASE
     Route: 042
     Dates: start: 20130411
  2. CORTICOSTEROIDS [Concomitant]
  3. BETA BLOCKING AGENTS [Concomitant]
  4. BACTRIM (SULFAMETHOXOLE, TRIMETHOPRIM) [Concomitant]
  5. PARACETAMOL (PARACETAMOL) [Concomitant]
  6. ITRACONAZOLE (ITRACONAZOLE) [Concomitant]
  7. TIGECYCLINE (TIGECYCLINE) [Concomitant]
  8. GASTROPROTECTIVE DRUG [Concomitant]

REACTIONS (11)
  - Transaminases increased [None]
  - Bone marrow toxicity [None]
  - Dyspnoea exertional [None]
  - Hypokinesia [None]
  - Gamma-glutamyltransferase increased [None]
  - Blood lactate dehydrogenase increased [None]
  - Hepatic function abnormal [None]
  - Hodgkin^s disease [None]
  - Neoplasm recurrence [None]
  - Alanine aminotransferase increased [None]
  - Stem cell transplant [None]
